FAERS Safety Report 6616977-X (Version None)
Quarter: 2010Q1

REPORT INFORMATION
  Report Type: 
  Country: None (occurrence: None)
  Receive Date: 20100301
  Receipt Date: 20100215
  Transmission Date: 20100710
  Serious: Yes (Hospitalization)
  Sender: FDA-Public Use
  Company Number: 060001M10NOR

PATIENT
  Age: 32 Year
  Sex: Female

DRUGS (1)
  1. SEROPHENE [Suspect]
     Indication: INFERTILITY
     Dosage: 50 MG, 2 IN 1 DAYS, ORAL
     Route: 048
     Dates: start: 20100211, end: 20100212

REACTIONS (7)
  - ABDOMINAL PAIN [None]
  - DIZZINESS [None]
  - DYSPNOEA [None]
  - HEADACHE [None]
  - NAUSEA [None]
  - SYNCOPE [None]
  - VISUAL IMPAIRMENT [None]
